FAERS Safety Report 7312091-9 (Version None)
Quarter: 2011Q1

REPORT INFORMATION
  Report Type: 
  Country: None (occurrence: None)
  Receive Date: 20110214
  Receipt Date: 20110129
  Transmission Date: 20110831
  Serious: Yes (Hospitalization, Other)
  Sender: FDA-Public Use
  Company Number: 2011AP000176

PATIENT
  Age: 39 Year
  Sex: Male

DRUGS (3)
  1. TRAMADOL HYDROCHLORIDE [Suspect]
     Indication: PELVIC PAIN
     Dosage: 600 MG;QD
  2. HYDROCODONE BITARTRATE [Concomitant]
  3. ACETAMINOPHEN [Concomitant]

REACTIONS (7)
  - FORMICATION [None]
  - ANXIETY [None]
  - RESTLESSNESS [None]
  - WITHDRAWAL SYNDROME [None]
  - DYSPHORIA [None]
  - DRUG DEPENDENCE [None]
  - MUSCLE SPASMS [None]
